FAERS Safety Report 24673197 (Version 1)
Quarter: 2024Q4

REPORT INFORMATION
  Report Type: Spontaneous
  Country: US (occurrence: US)
  Receive Date: 20241128
  Receipt Date: 20241128
  Transmission Date: 20250114
  Serious: No
  Sender: IBSA INSTITUT BIOCHIMIQUE
  Company Number: US-IBSA PHARMA INC.-2024IBS000036

PATIENT
  Age: 44 Year
  Sex: Female

DRUGS (1)
  1. TIROSINT [Suspect]
     Active Substance: LEVOTHYROXINE SODIUM
     Indication: Thyroidectomy
     Dosage: 125 MICROGRAM DAILY
     Route: 065
     Dates: start: 202401

REACTIONS (8)
  - Malaise [Not Recovered/Not Resolved]
  - Weight increased [Recovered/Resolved]
  - Depression [None]
  - Impaired work ability [None]
  - Alopecia [Not Recovered/Not Resolved]
  - Fatigue [None]
  - Swelling [Recovered/Resolved]
  - Product packaging quantity issue [Unknown]
